FAERS Safety Report 7489895-5 (Version None)
Quarter: 2011Q2

REPORT INFORMATION
  Report Type: 
  Country: None (occurrence: None)
  Receive Date: 20110517
  Receipt Date: 20110517
  Transmission Date: 20111010
  Serious: Yes (Hospitalization)
  Sender: FDA-Public Use
  Company Number: None

PATIENT
  Sex: Male
  Weight: 99.7913 kg

DRUGS (3)
  1. GEMCITABINE [Suspect]
     Indication: PANCREATIC CARCINOMA
     Dosage: 640 MG/M2
     Dates: start: 20110208, end: 20110405
  2. ERLOTINIB HYDROCHLORIDE [Concomitant]
  3. OXALIPLATIN [Suspect]
     Indication: PANCREATIC CARCINOMA
     Dosage: 65 MG/M2
     Dates: start: 20110207, end: 20110406

REACTIONS (5)
  - NAUSEA [None]
  - UPPER GASTROINTESTINAL HAEMORRHAGE [None]
  - PANCREATIC CARCINOMA METASTATIC [None]
  - VOMITING [None]
  - TACHYCARDIA [None]
